FAERS Safety Report 8616131-6 (Version None)
Quarter: 2012Q3

REPORT INFORMATION
  Report Type: 
  Country: None (occurrence: None)
  Receive Date: 20120815
  Receipt Date: 20120815
  Transmission Date: 20120928
  Serious: Yes (Hospitalization)
  Sender: FDA-Public Use
  Company Number: None

PATIENT
  Age: 86 Year
  Sex: Female
  Weight: 56.6996 kg

DRUGS (9)
  1. WARFARIN SODIUM [Suspect]
     Indication: DEEP VEIN THROMBOSIS
     Dosage: 5MG ONCE DAILY PO
     Route: 048
  2. ACETAMINOPHEN [Concomitant]
  3. FAMOTIDINE [Concomitant]
  4. DOCUSATE [Concomitant]
  5. OMEPRAZOLE [Concomitant]
  6. DONEPEZIL HCL [Concomitant]
  7. TAMSULOSIN HCL [Concomitant]
  8. ASCORBIC ACID [Concomitant]
  9. M.V.I. [Concomitant]

REACTIONS (2)
  - SUBDURAL HAEMORRHAGE [None]
  - INTERNATIONAL NORMALISED RATIO INCREASED [None]
